FAERS Safety Report 11082254 (Version 6)
Quarter: 2015Q4

REPORT INFORMATION
  Report Type: Report from Study
  Country: DE (occurrence: DE)
  Receive Date: 20150501
  Receipt Date: 20151118
  Transmission Date: 20160304
  Serious: Yes (Other)
  Sender: FDA-Public Use
  Company Number: DE-GILEAD-2015-0150688

PATIENT
  Age: 27 Year
  Sex: Male
  Weight: 66 kg

DRUGS (5)
  1. SOFOSBUVIR [Suspect]
     Active Substance: SOFOSBUVIR
     Indication: CHRONIC HEPATITIS C
     Dosage: 400 MG, QD
     Route: 048
     Dates: start: 20150128, end: 20150713
  2. ALLERGOSPASMIN [Concomitant]
     Indication: PRODUCT USED FOR UNKNOWN INDICATION
  3. COPEGUS [Suspect]
     Active Substance: RIBAVIRIN
     Indication: CHRONIC HEPATITIS C
     Dosage: 400 MG, BID
     Route: 048
     Dates: start: 20150128, end: 20150713
  4. POLAMIDON [Suspect]
     Active Substance: LEVOMETHADONE
     Indication: DRUG DETOXIFICATION
     Dosage: 15 MG, QD
     Route: 048
     Dates: start: 20141001
  5. METOHEXAL                          /00376902/ [Suspect]
     Active Substance: METOPROLOL SUCCINATE
     Indication: HYPERTENSION
     Dosage: 47.5 MG, QD
     Route: 048
     Dates: start: 20150127, end: 20150422

REACTIONS (9)
  - Weight decreased [Recovered/Resolved]
  - Gastrooesophageal reflux disease [Recovered/Resolved]
  - Bradycardia [Recovered/Resolved]
  - Palpitations [Unknown]
  - Pruritus [Recovered/Resolved]
  - Lipase increased [Recovered/Resolved]
  - Alopecia [Recovered/Resolved]
  - Headache [Recovered/Resolved]
  - Fatigue [Not Recovered/Not Resolved]

NARRATIVE: CASE EVENT DATE: 20150205
